FAERS Safety Report 13246773 (Version 1)
Quarter: 2017Q1

REPORT INFORMATION
  Report Type: Spontaneous
  Country: US (occurrence: US)
  Receive Date: 20170217
  Receipt Date: 20170217
  Transmission Date: 20170428
  Serious: Yes (Hospitalization, Other)
  Sender: FDA-Public Use
  Company Number: US-ASTRAZENECA-2017SE16514

PATIENT
  Sex: Male

DRUGS (3)
  1. COLCRYX [Concomitant]
  2. SYMBICORT [Suspect]
     Active Substance: BUDESONIDE\FORMOTEROL FUMARATE DIHYDRATE
     Indication: COUGH
     Route: 048
  3. ALLOPURINAL [Concomitant]

REACTIONS (2)
  - Secretion discharge [Unknown]
  - Dysphonia [Unknown]
